FAERS Safety Report 4325939-7 (Version None)
Quarter: 2004Q1

REPORT INFORMATION
  Report Type: 
  Country: None (occurrence: None)
  Receive Date: 20040324
  Receipt Date: 20040310
  Transmission Date: 20041129
  Serious: Yes (Other)
  Sender: FDA-Public Use
  Company Number: 2004017267

PATIENT
  Age: 64 Year
  Sex: Female
  Weight: 86.1834 kg

DRUGS (7)
  1. DILANTIN [Suspect]
     Indication: CONVULSION
     Dosage: 400 MG (BID),
  2. PRIMIDONE [Suspect]
     Indication: CONVULSION
     Dosage: 750 MG (TID),
  3. ARTHROTEC [Concomitant]
  4. RABEPRAZOLE SODIUM (RABEPRAZOLE SODIUM) [Concomitant]
  5. CONJUGATED ESTROGENS [Concomitant]
  6. ALLEGRA-D (PSEUDOEPHEDRINE HYDROCHLORIDE, FEXOFENADINE) [Concomitant]
  7. FLUTICASONE PROPIONATE [Concomitant]

REACTIONS (7)
  - BREAST CANCER [None]
  - CONVULSION [None]
  - DIARRHOEA [None]
  - DIZZINESS [None]
  - GLOSSODYNIA [None]
  - PAIN [None]
  - VOMITING [None]
